FAERS Safety Report 4546130-5 (Version None)
Quarter: 2005Q1

REPORT INFORMATION
  Report Type: 
  Country: None (occurrence: None)
  Receive Date: 20050103
  Receipt Date: 20041227
  Transmission Date: 20050727
  Serious: Yes (Hospitalization, Other)
  Sender: FDA-Public Use
  Company Number: 200415988BCC

PATIENT
  Age: 63 Year
  Sex: Female
  Weight: 106.5953 kg

DRUGS (5)
  1. REGIMEN BAYER ASPIRIN 81 MG (ACETYLSALICYLIC ACID) [Suspect]
     Indication: MYOCARDIAL INFARCTION
     Dosage: SEE IMAGE
     Route: 048
     Dates: start: 19981101, end: 20041117
  2. REGIMEN BAYER ASPIRIN 81 MG (ACETYLSALICYLIC ACID) [Suspect]
     Indication: PROPHYLAXIS
     Dosage: SEE IMAGE
     Route: 048
     Dates: start: 19981101, end: 20041117
  3. REGIMEN BAYER ASPIRIN 81 MG (ACETYLSALICYLIC ACID) [Suspect]
     Indication: MYOCARDIAL INFARCTION
     Dosage: SEE IMAGE
     Route: 048
     Dates: start: 20041201
  4. REGIMEN BAYER ASPIRIN 81 MG (ACETYLSALICYLIC ACID) [Suspect]
     Indication: PROPHYLAXIS
     Dosage: SEE IMAGE
     Route: 048
     Dates: start: 20041201
  5. LEVOXYL [Concomitant]

REACTIONS (5)
  - CATARACT OPERATION [None]
  - CYSTITIS [None]
  - ENDOMETRIAL CANCER [None]
  - ENDOMETRIAL HYPERTROPHY [None]
  - HAEMATURIA [None]
